FAERS Safety Report 12373194 (Version 5)
Quarter: 2016Q4

REPORT INFORMATION
  Report Type: Spontaneous
  Country: US (occurrence: US)
  Receive Date: 20160516
  Receipt Date: 20161116
  Transmission Date: 20170207
  Serious: No
  Sender: FDA-Public Use
  Company Number: US-ACTELION-A-NJ2016-135656

PATIENT
  Age: 4 Year
  Sex: Female

DRUGS (3)
  1. REVATIO [Concomitant]
     Active Substance: SILDENAFIL CITRATE
  2. VELETRI [Suspect]
     Active Substance: EPOPROSTENOL
     Indication: PULMONARY HYPERTENSION
     Dosage: 81 NG/KG, PER MIN
     Route: 042
     Dates: start: 20160408
  3. VELETRI [Suspect]
     Active Substance: EPOPROSTENOL
     Dosage: 90 NG/KG/MIN
     Route: 042
     Dates: start: 20161020

REACTIONS (6)
  - Product solubility abnormal [Unknown]
  - Feeling abnormal [Unknown]
  - Headache [Unknown]
  - Tinnitus [Unknown]
  - Food intolerance [Unknown]
  - Toothache [Unknown]
